FAERS Safety Report 5118578-1 (Version None)
Quarter: 2006Q3

REPORT INFORMATION
  Report Type: 
  Country: None (occurrence: None)
  Receive Date: 20060927
  Receipt Date: 20060922
  Transmission Date: 20061208
  Serious: Yes (Hospitalization)
  Sender: FDA-Public Use
  Company Number: GXKR2006TN05843

PATIENT
  Age: 33 Year
  Sex: Female

DRUGS (1)
  1. METFORMIN (NGX) (METFORMIN) [Suspect]
     Indication: WEIGHT INCREASED
     Dosage: 850 MG, QD, UNKNOWN

REACTIONS (2)
  - LEUKOCYTOCLASTIC VASCULITIS [None]
  - SELF-MEDICATION [None]
